FAERS Safety Report 22357834 (Version 2)
Quarter: 2023Q2

REPORT INFORMATION
  Report Type: Other
  Country: DK (occurrence: DK)
  Receive Date: 20230524
  Receipt Date: 20230602
  Transmission Date: 20230722
  Serious: Yes (Death)
  Sender: FDA-Public Use
  Company Number: DK-ROCHE-3354333

PATIENT
  Age: 71 Year
  Sex: Male

DRUGS (10)
  1. TECENTRIQ [Suspect]
     Active Substance: ATEZOLIZUMAB
     Indication: Non-small cell lung cancer
     Dosage: DATE OF LAST DOSE OF TECENTRIQ 16/MAY/2023
     Route: 041
  2. TECENTRIQ [Suspect]
     Active Substance: ATEZOLIZUMAB
     Indication: Lung cancer metastatic
     Route: 041
     Dates: start: 202212
  3. DIGOXIN [Concomitant]
     Active Substance: DIGOXIN
  4. SPIRONOLACTONE [Concomitant]
     Active Substance: SPIRONOLACTONE
  5. FORMOTEROL [Concomitant]
     Active Substance: FORMOTEROL
  6. RIVAROXABAN [Concomitant]
     Active Substance: RIVAROXABAN
  7. BICALUTAMIDE [Concomitant]
     Active Substance: BICALUTAMIDE
  8. RAMIPRIL [Concomitant]
     Active Substance: RAMIPRIL
  9. ALBUTEROL [Concomitant]
     Active Substance: ALBUTEROL
  10. METOPROLOL SUCCINATE [Concomitant]
     Active Substance: METOPROLOL SUCCINATE

REACTIONS (3)
  - Tumour haemorrhage [Fatal]
  - Exsanguination [Fatal]
  - Haemoptysis [Fatal]

NARRATIVE: CASE EVENT DATE: 20230516
